FAERS Safety Report 4994250-3 (Version None)
Quarter: 2006Q2

REPORT INFORMATION
  Report Type: 
  Country: None (occurrence: None)
  Receive Date: 20060505
  Receipt Date: 20060407
  Transmission Date: 20061013
  Serious: Yes (Disabling)
  Sender: FDA-Public Use
  Company Number: FR-ROCHE-443945

PATIENT
  Age: 16 Year
  Sex: Female
  Weight: 39.5 kg

DRUGS (9)
  1. ROACCUTANE [Suspect]
     Indication: DRUG USE FOR UNKNOWN INDICATION
     Dosage: 7 MONTHS OF TREATMENT.
     Route: 048
     Dates: start: 20040915, end: 20050415
  2. ROACCUTANE [Suspect]
     Route: 048
     Dates: start: 20051215
  3. CREON [Concomitant]
  4. TOCO [Concomitant]
  5. UVESTEROL [Concomitant]
  6. RETINOL [Concomitant]
  7. ZITHROMAX [Concomitant]
  8. BACTRIM [Concomitant]
  9. OXACILLIN [Concomitant]

REACTIONS (4)
  - APOPTOSIS [None]
  - EYE DISORDER [None]
  - GENERAL PHYSICAL HEALTH DETERIORATION [None]
  - MUSCULAR WEAKNESS [None]
